FAERS Safety Report 7099530-6 (Version None)
Quarter: 2010Q4

REPORT INFORMATION
  Report Type: 
  Country: None (occurrence: None)
  Receive Date: 20101112
  Receipt Date: 20101101
  Transmission Date: 20110411
  Serious: Yes (Hospitalization)
  Sender: FDA-Public Use
  Company Number: US-ROCHE-738494

PATIENT
  Sex: Female
  Weight: 78.7 kg

DRUGS (12)
  1. AVASTIN [Suspect]
     Dosage: DOSE: 10 MG/KG
     Route: 042
     Dates: start: 20101020
  2. TAXOL [Concomitant]
     Route: 042
  3. GEMZAR [Concomitant]
     Route: 042
     Dates: start: 20101028
  4. ASPIRIN [Concomitant]
     Dosage: FORM: ENTERIC COATED TABLET.
     Route: 048
  5. CALTRATE [Concomitant]
     Dosage: CALTRATE 600 WITH D 600 MG-400 INTL UNITS
     Route: 048
  6. DAYPRO [Concomitant]
     Dosage: OXAPROZIN
     Route: 048
  7. FLONASE [Concomitant]
     Dosage: NASAL SPRAY
  8. FOSINOPRIL SODIUM [Concomitant]
     Route: 048
  9. MIRALAX [Concomitant]
     Dosage: ONCE A DAY AS NEEDED
     Route: 048
  10. NEXIUM [Concomitant]
     Dosage: DELAYED RELEASE CAPSULE
     Route: 048
  11. NORVASC [Concomitant]
     Route: 048
  12. VENTOLIN [Concomitant]

REACTIONS (1)
  - PLEURAL EFFUSION [None]
